FAERS Safety Report 22126620 (Version 4)
Quarter: 2023Q4

REPORT INFORMATION
  Report Type: Report from Study
  Country: US (occurrence: US)
  Receive Date: 20230322
  Receipt Date: 20231122
  Transmission Date: 20240110
  Serious: Yes (Hospitalization, Other)
  Sender: FDA-Public Use
  Company Number: US-002147023-NVSC2022US075650

PATIENT
  Age: 65 Year
  Sex: Female
  Weight: 52.9 kg

DRUGS (8)
  1. LAMPRENE [Suspect]
     Active Substance: CLOFAZIMINE
     Indication: Mycobacterium avium complex infection
     Dosage: 100 MG
     Route: 048
     Dates: start: 20161109, end: 20220330
  2. LAMPRENE [Suspect]
     Active Substance: CLOFAZIMINE
     Dosage: 100 MG
     Route: 048
     Dates: start: 20230208
  3. LAMPRENE [Suspect]
     Active Substance: CLOFAZIMINE
     Dosage: 100 MG (LAST DOSE DATE WAS 09 OCT 2023 AND 18 OCT 2023)
     Route: 048
     Dates: start: 20230524, end: 20231018
  4. BEDAQUILINE [Concomitant]
     Active Substance: BEDAQUILINE
     Indication: Mycobacterium avium complex infection
     Dosage: 100 MG
     Route: 048
     Dates: start: 20130925
  5. ETHAMBUTOL [Concomitant]
     Active Substance: ETHAMBUTOL HYDROCHLORIDE
     Indication: Mycobacterium avium complex infection
     Dosage: 400 MG
     Route: 048
     Dates: start: 20090107
  6. CEFDINIR [Concomitant]
     Active Substance: CEFDINIR
     Indication: Pneumonia
     Dosage: 300 MG
     Route: 048
     Dates: start: 20220102, end: 20220112
  7. AUGMENTIN [Concomitant]
     Active Substance: AMOXICILLIN\CLAVULANATE POTASSIUM
     Indication: Pneumonia
     Dosage: 500 MG
     Route: 048
     Dates: start: 20220107, end: 20220113
  8. TOBRAMYCIN [Concomitant]
     Active Substance: TOBRAMYCIN
     Indication: Product used for unknown indication
     Dosage: 300 MG(INHALATION)
     Route: 055
     Dates: start: 20220407

REACTIONS (28)
  - Bronchiectasis [Recovered/Resolved]
  - Bronchiectasis [Recovered/Resolved]
  - Concomitant disease aggravated [Recovering/Resolving]
  - Acute respiratory failure [Recovered/Resolved]
  - Pneumonia [Recovering/Resolving]
  - Leukocytosis [Recovered/Resolved]
  - Colitis [Recovering/Resolving]
  - Diarrhoea [Recovered/Resolved]
  - Chronic respiratory failure [Unknown]
  - Fatigue [Unknown]
  - Pyrexia [Unknown]
  - Dyspnoea [Unknown]
  - Hypoxia [Recovered/Resolved]
  - Urinary tract infection [Recovered/Resolved]
  - Clostridium difficile infection [Not Recovered/Not Resolved]
  - Weight increased [Unknown]
  - Pharyngitis [Recovered/Resolved]
  - Dysphonia [Recovered/Resolved]
  - Nausea [Not Recovered/Not Resolved]
  - Neck pain [Not Recovered/Not Resolved]
  - Taste disorder [Recovered/Resolved]
  - Back pain [Not Recovered/Not Resolved]
  - Dysuria [Recovered/Resolved]
  - Urinary tract infection [Recovered/Resolved]
  - Urinary tract infection [Recovered/Resolved]
  - Cystic fibrosis [Not Recovered/Not Resolved]
  - Cystitis [Recovered/Resolved]
  - Haematuria [Recovered/Resolved]

NARRATIVE: CASE EVENT DATE: 20220307
